FAERS Safety Report 19072641 (Version 1)
Quarter: 2021Q1

REPORT INFORMATION
  Report Type: Spontaneous
  Country: US (occurrence: US)
  Receive Date: 20210329
  Receipt Date: 20210329
  Transmission Date: 20210420
  Serious: Yes (Other)
  Sender: FDA-Public Use
  Company Number: None

PATIENT
  Age: 51 Year
  Sex: Female
  Weight: 69.4 kg

DRUGS (1)
  1. MEPERIDINE [Suspect]
     Active Substance: MEPERIDINE
     Indication: SEDATION
     Route: 042
     Dates: start: 20210325, end: 20210325

REACTIONS (1)
  - Urticaria [None]

NARRATIVE: CASE EVENT DATE: 20210325
